FAERS Safety Report 4536188-1 (Version None)
Quarter: 2004Q4

REPORT INFORMATION
  Report Type: 
  Country: None (occurrence: None)
  Receive Date: 20041223
  Receipt Date: 20041221
  Transmission Date: 20050328
  Serious: Yes (Other)
  Sender: FDA-Public Use
  Company Number: US-GLAXOSMITHKLINE-A0538139A

PATIENT
  Sex: Male

DRUGS (1)
  1. PAXIL [Suspect]
     Indication: STRESS SYMPTOMS
     Route: 048
     Dates: start: 20000101

REACTIONS (4)
  - ANHEDONIA [None]
  - DEPRESSION [None]
  - DRUG DEPENDENCE [None]
  - PSYCHIATRIC SYMPTOM [None]
